FAERS Safety Report 9326839 (Version 2)
Quarter: 2013Q2

REPORT INFORMATION
  Report Type: Spontaneous
  Country: US (occurrence: US)
  Receive Date: 20130604
  Receipt Date: 20130614
  Transmission Date: 20140414
  Serious: No
  Sender: FDA-Public Use
  Company Number: US-PFIZER INC-2013165744

PATIENT
  Age: 86 Year
  Sex: Male
  Weight: 100 kg

DRUGS (7)
  1. SUTENT [Suspect]
     Indication: NEOPLASM MALIGNANT
     Dosage: 37.5 MG, 1X/DAY
     Route: 048
     Dates: start: 20130508, end: 20130529
  2. ALLOPURINOL [Concomitant]
     Dosage: UNK
  3. METOPROLOL [Concomitant]
     Dosage: UNK
  4. LASIX [Concomitant]
     Dosage: UNK
  5. POTASSIUM CHLORIDE [Concomitant]
     Dosage: UNK
  6. TERAZOSIN [Concomitant]
     Dosage: UNK
  7. BOOST [Concomitant]
     Dosage: UNK

REACTIONS (12)
  - Oral pain [Unknown]
  - Pain in extremity [Unknown]
  - Fatigue [Unknown]
  - Diarrhoea [Unknown]
  - Decreased appetite [Unknown]
  - Nausea [Unknown]
  - Headache [Unknown]
  - Alopecia [Unknown]
  - Thyroid disorder [Unknown]
  - Eating disorder [Unknown]
  - Fluid intake reduced [Unknown]
  - Insomnia [Unknown]
